FAERS Safety Report 11968730 (Version 1)
Quarter: 2016Q1

REPORT INFORMATION
  Report Type: Spontaneous
  Country: IT (occurrence: IT)
  Receive Date: 20160128
  Receipt Date: 20160128
  Transmission Date: 20160526
  Serious: Yes (Other)
  Sender: FDA-Public Use
  Company Number: IT-ROCHE-1701423

PATIENT
  Age: 20 Year
  Sex: Female

DRUGS (1)
  1. ROCEFIN [Suspect]
     Active Substance: CEFTRIAXONE SODIUM
     Indication: PRODUCT USED FOR UNKNOWN INDICATION
     Dosage: 1G /10ML 1 VIAL OF POWDER + 1 VIAL OF SOLVENT
     Route: 042
     Dates: start: 20151212, end: 20151212

REACTIONS (5)
  - Abdominal pain [Recovering/Resolving]
  - Dysentery [Recovering/Resolving]
  - Astringent therapy [Recovering/Resolving]
  - Vomiting [Recovering/Resolving]
  - Erythema [Recovering/Resolving]

NARRATIVE: CASE EVENT DATE: 20151212
